FAERS Safety Report 14054304 (Version 1)
Quarter: 2017Q4

REPORT INFORMATION
  Report Type: Spontaneous
  Country: US (occurrence: US)
  Receive Date: 20171006
  Receipt Date: 20171006
  Transmission Date: 20180321
  Serious: Yes (Other)
  Sender: FDA-Public Use
  Company Number: US-ENDO PHARMACEUTICALS INC-2017-005238

PATIENT
  Age: 21 Year
  Sex: Female

DRUGS (1)
  1. KETALAR [Suspect]
     Active Substance: KETAMINE HYDROCHLORIDE
     Indication: SUBSTANCE USE
     Dosage: UNK UNK, DAILY
     Route: 065

REACTIONS (8)
  - Biliary dilatation [Unknown]
  - Hydronephrosis [Unknown]
  - Abdominal pain upper [Unknown]
  - Sterile pyuria [Unknown]
  - Drug abuse [Unknown]
  - Pollakiuria [Unknown]
  - Dysuria [Unknown]
  - Transaminases increased [Unknown]
